FAERS Safety Report 15897675 (Version 1)
Quarter: 2019Q1

REPORT INFORMATION
  Report Type: Spontaneous
  Country: CN (occurrence: CN)
  Receive Date: 20190131
  Receipt Date: 20190131
  Transmission Date: 20190417
  Serious: Yes (Other)
  Sender: FDA-Public Use
  Company Number: CN-ROCHE-2250159

PATIENT
  Age: 35 Year
  Sex: Male

DRUGS (6)
  1. GANCICLOVIR. [Suspect]
     Active Substance: GANCICLOVIR
     Indication: INFECTION
     Route: 065
  2. SIROLIMUS. [Concomitant]
     Active Substance: SIROLIMUS
     Indication: RENAL TRANSPLANT
  3. CYCLOSPORINE. [Concomitant]
     Active Substance: CYCLOSPORINE
     Indication: RENAL TRANSPLANT
  4. MYCOPHENOLATE MOFETIL. [Suspect]
     Active Substance: MYCOPHENOLATE MOFETIL
     Indication: RENAL TRANSPLANT
     Route: 065
  5. PREDNISONE. [Concomitant]
     Active Substance: PREDNISONE
     Indication: RENAL TRANSPLANT
  6. METHYLPREDNISOLONE. [Concomitant]
     Active Substance: METHYLPREDNISOLONE
     Indication: TRANSPLANT REJECTION

REACTIONS (13)
  - Cytomegalovirus infection [Unknown]
  - Antibody test positive [Unknown]
  - Decreased appetite [Unknown]
  - Bone marrow failure [Recovering/Resolving]
  - Hepatic function abnormal [Recovered/Resolved]
  - Metabolic acidosis [Unknown]
  - Complications of transplanted kidney [Unknown]
  - Anuria [Recovered/Resolved]
  - Transplant rejection [Unknown]
  - Delayed graft function [Unknown]
  - Upper gastrointestinal haemorrhage [Recovered/Resolved]
  - Blood creatinine increased [Unknown]
  - Nausea [Unknown]
